FAERS Safety Report 11964954 (Version 1)
Quarter: 2016Q1

REPORT INFORMATION
  Report Type: Spontaneous
  Country: CN (occurrence: CN)
  Receive Date: 20160127
  Receipt Date: 20160127
  Transmission Date: 20160526
  Serious: Yes (Hospitalization, Other)
  Sender: FDA-Public Use
  Company Number: CN-ACCORD-037245

PATIENT
  Age: 63 Year
  Sex: Male

DRUGS (3)
  1. TIROFIBAN/TIROFIBAN HYDROCHLORIDE [Concomitant]
     Indication: ANTIPLATELET THERAPY
     Dosage: 0.4 ?G/KG/MIN FOR 30 MIN
     Route: 042
  2. ACETYLSALICYLIC ACID [Concomitant]
     Active Substance: ASPIRIN
     Indication: ANTIPLATELET THERAPY
     Route: 048
  3. CLOPIDOGREL [Suspect]
     Active Substance: CLOPIDOGREL BISULFATE
     Indication: ANTIPLATELET THERAPY
     Route: 048

REACTIONS (3)
  - Vascular stent thrombosis [Recovered/Resolved]
  - Disease recurrence [Recovered/Resolved]
  - Therapeutic response decreased [Unknown]
